FAERS Safety Report 14676331 (Version 2)
Quarter: 2018Q3

REPORT INFORMATION
  Report Type: Report from Study
  Country: RU (occurrence: RU)
  Receive Date: 20180323
  Receipt Date: 20180810
  Transmission Date: 20181010
  Serious: Yes (Hospitalization, Other)
  Sender: FDA-Public Use
  Company Number: RU-B.I. PHARMACEUTICALS,INC./RIDGEFIELD-2017-BI-063380

PATIENT
  Age: 53 Year
  Sex: Male
  Weight: 85 kg

DRUGS (6)
  1. BIBF 1120 [Suspect]
     Active Substance: NINTEDANIB
     Indication: PLEURAL MESOTHELIOMA MALIGNANT
     Route: 048
     Dates: start: 20170923, end: 20171119
  2. PEMETREXED. [Suspect]
     Active Substance: PEMETREXED
     Indication: PLEURAL MESOTHELIOMA MALIGNANT
     Dosage: FORM OF ADMIN: SOLUTION
     Route: 042
     Dates: start: 20171110, end: 20171110
  3. PEMETREXED. [Suspect]
     Active Substance: PEMETREXED
     Dosage: FORM OF ADMIN: SOLUTION
     Route: 042
     Dates: start: 20171201
  4. BIBF 1120 [Suspect]
     Active Substance: NINTEDANIB
     Dosage: (START EVENING)
     Route: 048
     Dates: start: 20171125
  5. CISPLATIN. [Suspect]
     Active Substance: CISPLATIN
     Dosage: FORM OF ADMIN: SOLUTION
     Route: 042
     Dates: start: 20171201
  6. CISPLATIN. [Suspect]
     Active Substance: CISPLATIN
     Indication: PLEURAL MESOTHELIOMA MALIGNANT
     Dosage: FORM OF ADMIN: SOLUTION
     Route: 042
     Dates: start: 20171110, end: 20171110

REACTIONS (2)
  - Hypertension [Recovered/Resolved]
  - Cardiac failure [Not Recovered/Not Resolved]

NARRATIVE: CASE EVENT DATE: 20171119
